FAERS Safety Report 19085825 (Version 1)
Quarter: 2021Q2

REPORT INFORMATION
  Report Type: Spontaneous
  Country: GB (occurrence: GB)
  Receive Date: 20210402
  Receipt Date: 20210402
  Transmission Date: 20210717
  Serious: Yes (Other)
  Sender: FDA-Public Use
  Company Number: GB-SUN PHARMACEUTICAL INDUSTRIES LTD-2021RR-289093

PATIENT
  Age: 46 Year
  Sex: Female

DRUGS (1)
  1. CLARITHROMYCIN. [Suspect]
     Active Substance: CLARITHROMYCIN
     Indication: ILL-DEFINED DISORDER
     Dosage: THE DOSAGE WAS 1 TABLET TWICE A DAY, I HAD 2 TABLETS BEFORE STOPPING
     Route: 048
     Dates: start: 20210217, end: 20210218

REACTIONS (7)
  - Adverse drug reaction [Recovered/Resolved]
  - Disorientation [Recovered/Resolved]
  - Abdominal distension [Recovered/Resolved]
  - Dizziness [Recovered/Resolved]
  - Abdominal pain [Recovered/Resolved]
  - Adverse drug reaction [Recovered/Resolved]
  - Nausea [Recovered/Resolved]

NARRATIVE: CASE EVENT DATE: 20210217
